FAERS Safety Report 5372273-2 (Version None)
Quarter: 2007Q2

REPORT INFORMATION
  Report Type: 
  Country: None (occurrence: None)
  Receive Date: 20070615
  Receipt Date: 20070126
  Transmission Date: 20071010
  Serious: Yes (Other)
  Sender: FDA-Public Use
  Company Number: 200619635US

PATIENT
  Age: 23 Year
  Sex: Male
  Weight: 90.9 kg

DRUGS (3)
  1. LANTUS [Suspect]
     Indication: DIABETES MELLITUS INSULIN-DEPENDENT
     Dosage: QD
     Dates: start: 20061101, end: 20061126
  2. LANTUS [Suspect]
     Indication: DIABETES MELLITUS INSULIN-DEPENDENT
     Dates: start: 20050101
  3. NOVOLOG [Suspect]
     Dosage: 23 U

REACTIONS (11)
  - DRUG INEFFECTIVE [None]
  - DYSGEUSIA [None]
  - FATIGUE [None]
  - HUNGER [None]
  - HYPERGLYCAEMIA [None]
  - INSOMNIA [None]
  - MALAISE [None]
  - MUSCLE ATROPHY [None]
  - NAUSEA [None]
  - OCULAR HYPERAEMIA [None]
  - PALLOR [None]
